FAERS Safety Report 5676348-X (Version None)
Quarter: 2008Q1

REPORT INFORMATION
  Report Type: 
  Country: None (occurrence: None)
  Receive Date: 20080321
  Receipt Date: 20080312
  Transmission Date: 20080703
  Serious: Yes (Other)
  Sender: FDA-Public Use
  Company Number: ES-PFIZER INC-2008023115

PATIENT
  Sex: Female

DRUGS (2)
  1. EPANUTIN [Suspect]
     Indication: EPILEPSY
  2. TRILEPTAL [Concomitant]

REACTIONS (1)
  - METABOLIC ACIDOSIS [None]
